FAERS Safety Report 16703302 (Version 1)
Quarter: 2019Q3

REPORT INFORMATION
  Report Type: Report from Study
  Country: US (occurrence: US)
  Receive Date: 20190814
  Receipt Date: 20190814
  Transmission Date: 20191004
  Serious: No
  Sender: FDA-Public Use
  Company Number: US-AEGERION PHARMACEUTICAL, INC-AEGR004007

PATIENT
  Age: 65 Year
  Sex: Female
  Weight: 58.5 kg

DRUGS (1)
  1. JUXTAPID [Suspect]
     Active Substance: LOMITAPIDE MESYLATE
     Indication: TYPE IIA HYPERLIPIDAEMIA
     Dosage: 5 MG, AT HOUR OF SLEEP
     Route: 048
     Dates: start: 20150520

REACTIONS (9)
  - Urinary tract infection [Unknown]
  - Rash generalised [Unknown]
  - Weight increased [Unknown]
  - Paranasal sinus hypersecretion [Unknown]
  - Condition aggravated [Unknown]
  - Cough [Unknown]
  - Nausea [Unknown]
  - Abdominal pain upper [Unknown]
  - Gastrooesophageal reflux disease [Unknown]

NARRATIVE: CASE EVENT DATE: 201809
